FAERS Safety Report 18341702 (Version 8)
Quarter: 2023Q2

REPORT INFORMATION
  Report Type: Report from Study
  Country: JP (occurrence: JP)
  Receive Date: 20201005
  Receipt Date: 20230619
  Transmission Date: 20230721
  Serious: Yes (Hospitalization, Other)
  Sender: FDA-Public Use
  Company Number: JP-CELLTRION INC.-2020JP024602

PATIENT

DRUGS (10)
  1. INFLIXIMAB-DYYB [Suspect]
     Active Substance: INFLIXIMAB-DYYB
     Indication: Crohn^s disease
     Dosage: 690 MILLIGRAM (WEIGHT 69.5 KG)
     Route: 041
     Dates: start: 20181016, end: 20181016
  2. INFLIXIMAB-DYYB [Suspect]
     Active Substance: INFLIXIMAB-DYYB
     Dosage: 680 MILLIGRAM (WEIGHT 67.8KG)
     Route: 041
     Dates: start: 20181224, end: 20181224
  3. INFLIXIMAB-DYYB [Suspect]
     Active Substance: INFLIXIMAB-DYYB
     Dosage: 680 MILLIGRAM (WEIGHT 68.2 KG)
     Route: 041
     Dates: start: 20190212, end: 20190212
  4. INFLIXIMAB-DYYB [Suspect]
     Active Substance: INFLIXIMAB-DYYB
     Dosage: 680 MILLIGRAM (WEIGHT 67.8 KG)
     Route: 041
     Dates: start: 20190411, end: 20190411
  5. INFLIXIMAB-DYYB [Suspect]
     Active Substance: INFLIXIMAB-DYYB
     Dosage: 670 MILLIGRAM (WEIGHT: 67.4 KG)
     Route: 041
     Dates: start: 20190924, end: 20190924
  6. INFLIXIMAB-DYYB [Suspect]
     Active Substance: INFLIXIMAB-DYYB
     Dosage: 660 MILLIGRAM (WEIGHT 65.7 KG)
     Route: 041
     Dates: start: 20201006, end: 20201006
  7. INFLIXIMAB-DYYB [Suspect]
     Active Substance: INFLIXIMAB-DYYB
     Dosage: 335 MILLIGRAM (WEIGHT 67.1 KG)
     Route: 041
     Dates: start: 20211005, end: 20211005
  8. INFLIXIMAB-DYYB [Suspect]
     Active Substance: INFLIXIMAB-DYYB
     Dosage: 350 MILLIGRAM (WEIGHT 69.5 KG)
     Route: 041
     Dates: start: 20221011, end: 20221011
  9. MESALAMINE [Concomitant]
     Active Substance: MESALAMINE
     Dosage: 3000 MG/DAY
     Route: 048
  10. MIZORIBINE [Concomitant]
     Active Substance: MIZORIBINE
     Dosage: 150 MG/DAY
     Route: 048

REACTIONS (21)
  - Meniere^s disease [Not Recovered/Not Resolved]
  - Hypokalaemia [Not Recovered/Not Resolved]
  - Hyperlipidaemia [Not Recovered/Not Resolved]
  - Migraine [Not Recovered/Not Resolved]
  - Muscle tightness [Not Recovered/Not Resolved]
  - Productive cough [Recovering/Resolving]
  - Angular cheilitis [Unknown]
  - Seasonal allergy [Not Recovered/Not Resolved]
  - Subileus [Recovered/Resolved]
  - Diarrhoea [Recovered/Resolved]
  - Diarrhoea [Unknown]
  - Gastroenteritis [Recovered/Resolved]
  - Gastroenteritis [Recovered/Resolved]
  - Gastrooesophageal reflux disease [Not Recovered/Not Resolved]
  - Herpes zoster [Recovered/Resolved]
  - Insomnia [Not Recovered/Not Resolved]
  - Nasopharyngitis [Recovered/Resolved]
  - Rash [Not Recovered/Not Resolved]
  - Overdose [Unknown]
  - Intentional product use issue [Unknown]
  - Therapeutic product effect decreased [Unknown]

NARRATIVE: CASE EVENT DATE: 20181203
